FAERS Safety Report 8449939-0 (Version None)
Quarter: 2012Q2

REPORT INFORMATION
  Report Type: 
  Country: None (occurrence: None)
  Receive Date: 20120620
  Receipt Date: 20120614
  Transmission Date: 20120825
  Serious: Yes (Other)
  Sender: FDA-Public Use
  Company Number: PHFR2012GB003481

PATIENT

DRUGS (1)
  1. IMATINIB MESYLATE [Suspect]

REACTIONS (4)
  - ELECTROCARDIOGRAM QT PROLONGED [None]
  - DRUG INTOLERANCE [None]
  - FLUID RETENTION [None]
  - PLEURAL FIBROSIS [None]
